FAERS Safety Report 5446492-0 (Version None)
Quarter: 2007Q3

REPORT INFORMATION
  Report Type: 
  Country: None (occurrence: None)
  Receive Date: 20070907
  Receipt Date: 20070830
  Transmission Date: 20080115
  Serious: Yes (Other)
  Sender: FDA-Public Use
  Company Number: US-JNJFOC-20070900109

PATIENT
  Sex: Male
  Weight: 90.72 kg

DRUGS (5)
  1. DURAGESIC-100 [Suspect]
     Route: 062
  2. DURAGESIC-100 [Suspect]
     Indication: PAIN
     Route: 062
  3. LEVOXYL [Concomitant]
     Route: 048
  4. ULTRAM [Concomitant]
     Indication: BREAKTHROUGH PAIN
     Route: 048
  5. XANAX [Concomitant]
     Indication: ANXIETY
     Route: 048

REACTIONS (8)
  - DRUG WITHDRAWAL SYNDROME [None]
  - HEADACHE [None]
  - HYPERTENSION [None]
  - PAIN [None]
  - PHARMACEUTICAL PRODUCT COMPLAINT [None]
  - RHINORRHOEA [None]
  - THERAPY CESSATION [None]
  - WRONG TECHNIQUE IN DRUG USAGE PROCESS [None]
